FAERS Safety Report 7632124-X (Version None)
Quarter: 2011Q3

REPORT INFORMATION
  Report Type: 
  Country: None (occurrence: None)
  Receive Date: 20110725
  Receipt Date: 20110725
  Transmission Date: 20111222
  Serious: Yes (Hospitalization)
  Sender: FDA-Public Use
  Company Number: None

PATIENT
  Sex: Female
  Weight: 81.193 kg

DRUGS (1)
  1. METOCLOPRAMIDE [Suspect]
     Indication: IMPAIRED GASTRIC EMPTYING
     Dosage: 1 TABLET
     Route: 048
     Dates: start: 20110718, end: 20110719

REACTIONS (8)
  - DYSPNOEA [None]
  - HYPERVENTILATION [None]
  - THROAT TIGHTNESS [None]
  - TREMOR [None]
  - NAUSEA [None]
  - ABNORMAL BEHAVIOUR [None]
  - DRUG HYPERSENSITIVITY [None]
  - PANIC ATTACK [None]
